FAERS Safety Report 5659612-X (Version None)
Quarter: 2008Q1

REPORT INFORMATION
  Report Type: 
  Country: None (occurrence: None)
  Receive Date: 20080311
  Receipt Date: 20080303
  Transmission Date: 20080703
  Serious: Yes (Other)
  Sender: FDA-Public Use
  Company Number: GB-ROCHE-551357

PATIENT
  Age: 58 Year
  Sex: Male
  Weight: 127 kg

DRUGS (4)
  1. ORLISTAT [Suspect]
     Indication: OBESITY
     Route: 048
     Dates: start: 20070924, end: 20080218
  2. WARFARIN SODIUM [Concomitant]
     Dosage: INDICATION REPORTED AS 'BLOOD'
     Route: 048
  3. UNSPECIFIED DRUG [Concomitant]
     Dosage: DRUG NAME REPORTED AS TENSELGESIC.
  4. BETA-BLOCKER [Concomitant]
     Indication: HYPERTENSION
     Route: 048

REACTIONS (1)
  - LEG AMPUTATION [None]
